FAERS Safety Report 9381339 (Version 1)
Quarter: 2013Q3

REPORT INFORMATION
  Report Type: Spontaneous
  Country: US (occurrence: US)
  Receive Date: 20130703
  Receipt Date: 20130703
  Transmission Date: 20140515
  Serious: Yes (Other)
  Sender: FDA-Public Use
  Company Number: US-ASTRAZENECA-2013SE48687

PATIENT
  Age: 61 Year
  Sex: Female

DRUGS (1)
  1. ZOMIG NASAL SPRAY [Suspect]
     Indication: MIGRAINE
     Route: 045

REACTIONS (3)
  - Lip swelling [Unknown]
  - Throat tightness [Unknown]
  - Dysphagia [Unknown]
